FAERS Safety Report 11144417 (Version 1)
Quarter: 2015Q2

REPORT INFORMATION
  Report Type: Spontaneous
  Country: US (occurrence: US)
  Receive Date: 20150526
  Receipt Date: 20150526
  Transmission Date: 20150821
  Serious: No
  Sender: FDA-Public Use
  Company Number: US-PFIZER INC-2015170457

PATIENT
  Age: 82 Year
  Sex: Male

DRUGS (4)
  1. SANDOSTATIN [Concomitant]
     Active Substance: OCTREOTIDE ACETATE
     Dosage: UNK
  2. SUTENT [Suspect]
     Active Substance: SUNITINIB MALATE
     Indication: LUNG CANCER METASTATIC
     Dosage: UNK
     Dates: start: 20150406
  3. MEGACE [Concomitant]
     Active Substance: MEGESTROL ACETATE
     Dosage: UNK
  4. SUTENT [Suspect]
     Active Substance: SUNITINIB MALATE
     Dosage: 25 MG, EVERY OTHER DAY

REACTIONS (9)
  - Movement disorder [Unknown]
  - Somnolence [Unknown]
  - Product use issue [Unknown]
  - Ageusia [Unknown]
  - Decreased appetite [Unknown]
  - Diarrhoea [Unknown]
  - Fluid intake reduced [Unknown]
  - Malaise [Unknown]
  - Hypotension [Unknown]
